FAERS Safety Report 12329763 (Version 1)
Quarter: 2016Q2

REPORT INFORMATION
  Report Type: Report from Study
  Country: CA (occurrence: CA)
  Receive Date: 20160503
  Receipt Date: 20160503
  Transmission Date: 20160815
  Serious: Yes (Hospitalization, Other)
  Sender: FDA-Public Use
  Company Number: CA-TAKEDA-2016TUS007465

PATIENT
  Age: 32 Year
  Sex: Female

DRUGS (10)
  1. PREDNISONE. [Concomitant]
     Active Substance: PREDNISONE
  2. SALOFALK                           /00000301/ [Concomitant]
     Active Substance: MESALAMINE
  3. NUVARING [Concomitant]
     Active Substance: ETHINYL ESTRADIOL\ETONOGESTREL
  4. HYDROCHLOROTHIAZIDE. [Concomitant]
     Active Substance: HYDROCHLOROTHIAZIDE
  5. CIPRALEX [Concomitant]
     Active Substance: ESCITALOPRAM OXALATE
  6. DICYCLOMINE HYDROCHLORIDE. [Concomitant]
     Active Substance: DICYCLOMINE HYDROCHLORIDE
  7. VEDOLIZUMAB [Suspect]
     Active Substance: VEDOLIZUMAB
     Indication: COLITIS ULCERATIVE
     Dosage: 300 MG, UNK
     Route: 042
     Dates: start: 20151001
  8. METHOTREXATE [Suspect]
     Active Substance: METHOTREXATE
     Indication: PRODUCT USED FOR UNKNOWN INDICATION
     Dosage: 2.5 MG, 1/WEEK
     Route: 065
  9. CALCIUM + VITAMIN D [Concomitant]
     Active Substance: CALCIUM\VITAMIN D
  10. PANTOLOC [Suspect]
     Active Substance: PANTOPRAZOLE SODIUM
     Indication: PRODUCT USED FOR UNKNOWN INDICATION
     Dosage: UNK, QD
     Route: 048

REACTIONS (13)
  - Diarrhoea [Not Recovered/Not Resolved]
  - Oropharyngeal pain [Recovering/Resolving]
  - Asthenia [Unknown]
  - Abdominal pain [Unknown]
  - Immunology test abnormal [Unknown]
  - Cough [Recovering/Resolving]
  - Fatigue [Unknown]
  - Viral infection [Unknown]
  - Tremor [Unknown]
  - Neck pain [Recovering/Resolving]
  - Haematemesis [Recovering/Resolving]
  - Paraesthesia [Recovering/Resolving]
  - Hypothermia [Recovering/Resolving]

NARRATIVE: CASE EVENT DATE: 2016
